FAERS Safety Report 16088818 (Version 1)
Quarter: 2019Q1

REPORT INFORMATION
  Report Type: Report from Study
  Country: US (occurrence: US)
  Receive Date: 20190319
  Receipt Date: 20190319
  Transmission Date: 20190418
  Serious: Yes (Hospitalization, Other)
  Sender: FDA-Public Use
  Company Number: US-GILEAD-2019-0390758

PATIENT
  Age: 60 Year
  Sex: Female

DRUGS (6)
  1. AMBRISENTAN [Suspect]
     Active Substance: AMBRISENTAN
     Indication: PULMONARY ARTERIAL HYPERTENSION
     Dosage: 10 MG, QD
     Route: 048
     Dates: start: 20181109
  2. AMBRISENTAN [Suspect]
     Active Substance: AMBRISENTAN
     Indication: CONNECTIVE TISSUE DISORDER
  3. AMBRISENTAN [Suspect]
     Active Substance: AMBRISENTAN
     Indication: HEART DISEASE CONGENITAL
  4. AMBRISENTAN [Suspect]
     Active Substance: AMBRISENTAN
     Indication: TOXICITY TO VARIOUS AGENTS
  5. WARFARIN [Concomitant]
     Active Substance: WARFARIN
  6. ASA [Concomitant]
     Active Substance: ASPIRIN

REACTIONS (3)
  - Anaemia [Not Recovered/Not Resolved]
  - Upper gastrointestinal haemorrhage [Unknown]
  - Arteriovenous malformation [Unknown]

NARRATIVE: CASE EVENT DATE: 201901
